FAERS Safety Report 9508654 (Version 1)
Quarter: 2013Q3

REPORT INFORMATION
  Report Type: Spontaneous
  Country: US (occurrence: US)
  Receive Date: 20130909
  Receipt Date: 20130909
  Transmission Date: 20140515
  Serious: Yes (Other)
  Sender: FDA-Public Use
  Company Number: US-ROCHE-1270755

PATIENT
  Age: 26 Year
  Sex: Male

DRUGS (2)
  1. RITUXAN [Suspect]
     Indication: RHEUMATOID ARTHRITIS
     Route: 065
  2. BENADRYL (UNITED STATES) [Concomitant]

REACTIONS (2)
  - Swollen tongue [Unknown]
  - Tongue pruritus [Unknown]
